FAERS Safety Report 5071810-5 (Version None)
Quarter: 2006Q3

REPORT INFORMATION
  Report Type: 
  Country: None (occurrence: None)
  Receive Date: 20060804
  Receipt Date: 20060728
  Transmission Date: 20061208
  Serious: Yes (Death)
  Sender: FDA-Public Use
  Company Number: PHFR2006GB02363

PATIENT
  Sex: Male

DRUGS (4)
  1. DICLOFENAC SODIUM [Suspect]
     Route: 065
  2. CODEINE PHOSPHATE [Suspect]
     Route: 065
  3. EFFEXOR [Suspect]
     Route: 065
  4. DIAZEPAM [Suspect]
     Route: 065

REACTIONS (2)
  - COMPLETED SUICIDE [None]
  - DRUG INTERACTION [None]
